FAERS Safety Report 7053626-3 (Version None)
Quarter: 2010Q4

REPORT INFORMATION
  Report Type: 
  Country: None (occurrence: None)
  Receive Date: 20101020
  Receipt Date: 20101015
  Transmission Date: 20110411
  Serious: Yes (Other)
  Sender: FDA-Public Use
  Company Number: GB-ROCHE-734149

PATIENT
  Age: 69 Year
  Sex: Female
  Weight: 90.6 kg

DRUGS (2)
  1. XENICAL [Suspect]
     Indication: WEIGHT CONTROL
     Route: 048
     Dates: start: 20100911, end: 20100917
  2. PRAVASTATIN [Concomitant]
     Route: 048
     Dates: start: 20090327

REACTIONS (2)
  - BLOOD PRESSURE INCREASED [None]
  - PANIC ATTACK [None]
